FAERS Safety Report 15854238 (Version 1)
Quarter: 2019Q1

REPORT INFORMATION
  Report Type: Spontaneous
  Country: US (occurrence: US)
  Receive Date: 20190121
  Receipt Date: 20190121
  Transmission Date: 20190417
  Serious: Yes (Other)
  Sender: FDA-Public Use
  Company Number: None

PATIENT
  Age: 63 Year
  Sex: Female
  Weight: 89.55 kg

DRUGS (10)
  1. WELLBUTRIN XL [Concomitant]
     Active Substance: BUPROPION HYDROCHLORIDE
  2. VITAMIN B12 [Concomitant]
     Active Substance: CYANOCOBALAMIN
  3. NORVSC [Concomitant]
  4. ASPIRIN. [Concomitant]
     Active Substance: ASPIRIN
  5. VITAMIN D3 [Concomitant]
     Active Substance: CHOLECALCIFEROL
  6. OFLOXACIN. [Suspect]
     Active Substance: OFLOXACIN
     Dosage: ?          QUANTITY:1 DROP(S);?
     Route: 047
     Dates: start: 20181019, end: 20181231
  7. PREDNISOLONE ACETATE. [Suspect]
     Active Substance: PREDNISOLONE ACETATE
     Indication: PROMOTION OF WOUND HEALING
     Dosage: ?          QUANTITY:1 DROP(S);?
     Route: 047
     Dates: start: 20181022, end: 20181031
  8. TOPAMAX [Concomitant]
     Active Substance: TOPIRAMATE
  9. MULTIVITAMIN [Concomitant]
     Active Substance: VITAMINS
  10. VENLAFAXINE [Concomitant]
     Active Substance: VENLAFAXINE HYDROCHLORIDE

REACTIONS (2)
  - Epistaxis [None]
  - Eye haemorrhage [None]

NARRATIVE: CASE EVENT DATE: 20181031
